FAERS Safety Report 24153849 (Version 2)
Quarter: 2025Q1

REPORT INFORMATION
  Report Type: Report from Study
  Country: CO (occurrence: CO)
  Receive Date: 20240730
  Receipt Date: 20250213
  Transmission Date: 20250409
  Serious: Yes (Hospitalization)
  Sender: TAKEDA
  Company Number: CO-TAKEDA-CO201907234

PATIENT
  Age: 51 Year
  Sex: Male
  Weight: 82 kg

DRUGS (14)
  1. ICATIBANT [Suspect]
     Active Substance: ICATIBANT ACETATE
     Indication: Hereditary angioedema
     Dosage: UNK UNK, Q6HR
     Dates: start: 20160527
  2. ICATIBANT [Suspect]
     Active Substance: ICATIBANT ACETATE
  3. ICATIBANT [Suspect]
     Active Substance: ICATIBANT ACETATE
     Dosage: UNK UNK, Q6HR
  4. ICATIBANT [Suspect]
     Active Substance: ICATIBANT ACETATE
  5. ICATIBANT [Suspect]
     Active Substance: ICATIBANT ACETATE
     Dosage: UNK UNK, Q6HR
  6. ICATIBANT [Suspect]
     Active Substance: ICATIBANT ACETATE
  7. ICATIBANT [Suspect]
     Active Substance: ICATIBANT ACETATE
     Dosage: UNK UNK, Q6HR
  8. ICATIBANT [Suspect]
     Active Substance: ICATIBANT ACETATE
  9. TAKHZYRO [Suspect]
     Active Substance: LANADELUMAB-FLYO
     Indication: Hereditary angioedema
     Dosage: 300 MILLIGRAM, 2/MONTH
     Dates: start: 20220716, end: 20220814
  10. TAKHZYRO [Suspect]
     Active Substance: LANADELUMAB-FLYO
     Dosage: UNK UNK, 2/MONTH
  11. TAKHZYRO [Suspect]
     Active Substance: LANADELUMAB-FLYO
     Dosage: 300 MILLIGRAM, Q2WEEKS
  12. DANAZOL [Concomitant]
     Active Substance: DANAZOL
     Indication: Inflammation
  13. LORATADINE [Concomitant]
     Active Substance: LORATADINE
     Indication: Premedication
  14. BETAMETHASONE [Concomitant]
     Active Substance: BETAMETHASONE
     Route: 061

REACTIONS (19)
  - Dyspnoea [Unknown]
  - Erythema [Not Recovered/Not Resolved]
  - Rash [Not Recovered/Not Resolved]
  - Infusion site induration [Recovering/Resolving]
  - Infusion site pruritus [Recovering/Resolving]
  - Infusion site erythema [Recovering/Resolving]
  - Infusion site oedema [Recovering/Resolving]
  - Expired product administered [Unknown]
  - Weight increased [Recovered/Resolved]
  - Skin laceration [Recovering/Resolving]
  - Weight decreased [Unknown]
  - Body height decreased [Unknown]
  - Accident at home [Recovering/Resolving]
  - Arthralgia [Recovering/Resolving]
  - Mobility decreased [Recovering/Resolving]
  - Tooth disorder [Unknown]
  - Body height increased [Unknown]
  - Product formulation issue [Unknown]
  - Hereditary angioedema [Recovered/Resolved]

NARRATIVE: CASE EVENT DATE: 20220216
